FAERS Safety Report 6283557-8 (Version None)
Quarter: 2009Q3

REPORT INFORMATION
  Report Type: 
  Country: None (occurrence: None)
  Receive Date: 20090724
  Receipt Date: 20090703
  Transmission Date: 20100115
  Serious: Yes (Hospitalization)
  Sender: FDA-Public Use
  Company Number: IE-GENENTECH-286222

PATIENT
  Sex: Male

DRUGS (3)
  1. BEVACIZUMAB [Suspect]
     Indication: BREAST CANCER
     Dosage: 720 MG, UNK
     Route: 042
     Dates: start: 20090429
  2. DOCETAXEL [Suspect]
     Indication: BREAST CANCER
     Dosage: 106 MG, UNK
     Route: 042
     Dates: start: 20090429
  3. CYCLOPHOSPHAMIDE [Suspect]
     Indication: BREAST CANCER
     Dosage: 852 MG, UNK
     Route: 042
     Dates: start: 20090429

REACTIONS (3)
  - LOCALISED INFECTION [None]
  - OEDEMA PERIPHERAL [None]
  - PAIN [None]
